FAERS Safety Report 10108927 (Version 2)
Quarter: 2014Q2

REPORT INFORMATION
  Report Type: Spontaneous
  Country: CA (occurrence: CA)
  Receive Date: 20140425
  Receipt Date: 20140607
  Transmission Date: 20141212
  Serious: Yes (Other)
  Sender: FDA-Public Use
  Company Number: CA-AMGEN-CANSP2014029666

PATIENT
  Age: 66 Year
  Sex: Female

DRUGS (2)
  1. PROLIA [Suspect]
     Indication: OSTEOPOROSIS POSTMENOPAUSAL
     Dosage: 60 MG, Q6MO
     Route: 058
     Dates: start: 20140411
  2. CALCIUM [Concomitant]

REACTIONS (12)
  - Tooth fracture [Recovered/Resolved]
  - Pain [Recovered/Resolved]
  - Musculoskeletal discomfort [Recovered/Resolved]
  - Spinal pain [Recovered/Resolved]
  - Abdominal pain [Unknown]
  - Back pain [Unknown]
  - Arthralgia [Unknown]
  - Muscle spasms [Recovered/Resolved]
  - Sleep disorder due to general medical condition, insomnia type [Recovered/Resolved]
  - Dysstasia [Recovered/Resolved]
  - Mobility decreased [Recovered/Resolved]
  - Gait disturbance [Recovered/Resolved]
